FAERS Safety Report 9669458 (Version 1)
Quarter: 2013Q4

REPORT INFORMATION
  Report Type: Spontaneous
  Country: US (occurrence: None)
  Receive Date: 20131101
  Receipt Date: 20131101
  Transmission Date: 20140711
  Serious: Yes (Other)
  Sender: FDA-Public Use
  Company Number: SYM-2013-12133

PATIENT
  Sex: 0

DRUGS (3)
  1. FLUOROURACIL [Suspect]
     Indication: ANAL CANCER
  2. MITOMYCIN [Suspect]
     Indication: ANAL CANCER
  3. THERAPEUTIC RADIOPHARMACEUTICALS [Suspect]
     Indication: ANAL CANCER

REACTIONS (1)
  - Thrombocytopenia [None]
